APPROVED DRUG PRODUCT: PRAMIPEXOLE DIHYDROCHLORIDE
Active Ingredient: PRAMIPEXOLE DIHYDROCHLORIDE
Strength: 4.5MG
Dosage Form/Route: TABLET, EXTENDED RELEASE;ORAL
Application: A202206 | Product #007
Applicant: PH HEALTH LTD
Approved: Feb 6, 2014 | RLD: No | RS: No | Type: DISCN